FAERS Safety Report 13515024 (Version 1)
Quarter: 2017Q2

REPORT INFORMATION
  Report Type: Spontaneous
  Country: US (occurrence: US)
  Receive Date: 20170504
  Receipt Date: 20170504
  Transmission Date: 20170830
  Serious: No
  Sender: FDA-Public Use
  Company Number: US-BAYER-2017-079175

PATIENT
  Age: 26 Year
  Sex: Female
  Weight: 66 kg

DRUGS (3)
  1. MIRAFIBER CAPLETS [Suspect]
     Active Substance: CITRIC ACID MONOHYDRATE\METHYLCELLULOSE
     Indication: GASTROINTESTINAL DISORDER
     Dosage: 2 DF, QD WITH BREAKFAST
     Route: 048
     Dates: start: 2017
  2. MIRAFIBER CAPLETS [Suspect]
     Active Substance: CITRIC ACID MONOHYDRATE\METHYLCELLULOSE
     Indication: GASTROINTESTINAL DISORDER
     Dosage: 4 DF, UNK
     Route: 048
  3. MIRALAX [Suspect]
     Active Substance: POLYETHYLENE GLYCOL 3350
     Indication: GASTROINTESTINAL DISORDER
     Dosage: UNK
     Route: 065
     Dates: start: 2015, end: 201611

REACTIONS (3)
  - Product use issue [Unknown]
  - Drug ineffective [Unknown]
  - Incorrect drug administration duration [Unknown]
